FAERS Safety Report 9308383 (Version 1)
Quarter: 2013Q2

REPORT INFORMATION
  Report Type: Spontaneous
  Country: FI (occurrence: FI)
  Receive Date: 20130524
  Receipt Date: 20130524
  Transmission Date: 20140414
  Serious: Yes (Other)
  Sender: FDA-Public Use
  Company Number: FI-ELI_LILLY_AND_COMPANY-FI201305004663

PATIENT
  Sex: Female

DRUGS (11)
  1. FORSTEO [Suspect]
     Indication: OSTEOPOROSIS
     Dosage: 20 UG, QD
     Route: 058
     Dates: start: 20120713
  2. METOTREXATE [Concomitant]
     Indication: RHEUMATOID ARTHRITIS
     Dosage: 10 MG, WEEKLY (1/W)
     Route: 065
  3. MEDROL [Concomitant]
     Indication: RHEUMATOID ARTHRITIS
     Dosage: 2 DF, QD
     Route: 065
  4. KEFALEX [Concomitant]
     Indication: INFECTION
     Dosage: 500 MG, TID
  5. NEURONTIN [Concomitant]
     Indication: PAIN
     Dosage: 500 MG, TID
     Route: 065
  6. EMCONCOR [Concomitant]
     Indication: ARRHYTHMIA
     Dosage: 5 MG, BID
     Route: 065
  7. NEXIUM [Concomitant]
     Indication: GASTRIC DISORDER
     Dosage: 40 MG, QD
     Route: 065
  8. CAD [Concomitant]
     Dosage: 500 MG, BID
     Route: 065
  9. PRIMASPAN [Concomitant]
     Dosage: 100 MG, QD
     Route: 065
  10. SIMVASTATIN [Concomitant]
     Indication: BLOOD CHOLESTEROL
     Dosage: 40 MG, QD
     Route: 065
  11. PARATABS [Concomitant]
     Indication: PAIN
     Dosage: 1 G, TID
     Route: 065

REACTIONS (1)
  - Malignant melanoma [Recovered/Resolved]
